FAERS Safety Report 8322297-8 (Version None)
Quarter: 2012Q2

REPORT INFORMATION
  Report Type: 
  Country: None (occurrence: None)
  Receive Date: 20120430
  Receipt Date: 20120424
  Transmission Date: 20120825
  Serious: Yes (Hospitalization)
  Sender: FDA-Public Use
  Company Number: PHHY2012TW034537

PATIENT
  Sex: Female

DRUGS (1)
  1. AMLODIPINE [Suspect]
     Indication: HYPERTENSION
     Dosage: 1 DF (VALS 80 MG, AMLO 05 MG),
     Route: 048
     Dates: start: 20111207

REACTIONS (8)
  - AORTIC ARTERIOSCLEROSIS [None]
  - BRONCHITIS CHRONIC [None]
  - CENTRAL NERVOUS SYSTEM LESION [None]
  - BRONCHIAL WALL THICKENING [None]
  - THALAMIC INFARCTION [None]
  - LUNG NEOPLASM [None]
  - NERVOUS SYSTEM DISORDER [None]
  - DIZZINESS [None]
